FAERS Safety Report 20601823 (Version 3)
Quarter: 2022Q2

REPORT INFORMATION
  Report Type: Report from Study
  Country: US (occurrence: US)
  Receive Date: 20220316
  Receipt Date: 20220531
  Transmission Date: 20220721
  Serious: Yes (Hospitalization)
  Sender: FDA-Public Use
  Company Number: US-BAYER-2022A005620

PATIENT
  Age: 60 Year
  Sex: Female
  Weight: 72.698 kg

DRUGS (19)
  1. ADEMPAS [Suspect]
     Active Substance: RIOCIGUAT
     Indication: Pulmonary arterial hypertension
     Dosage: 0.5 MG, TID
     Route: 048
     Dates: start: 20210824
  2. ADEMPAS [Suspect]
     Active Substance: RIOCIGUAT
     Indication: Pulmonary arterial hypertension
     Dosage: 0.5 MG, TID
     Route: 048
     Dates: start: 20220208
  3. ELIQUIS [Concomitant]
     Active Substance: APIXABAN
     Dosage: 5 MG, BID
     Dates: start: 20220208
  4. ALPRAZOLAM [Concomitant]
     Active Substance: ALPRAZOLAM
     Dosage: 1 MG, TID
     Dates: start: 20220208
  5. CLONAZEPAM [Concomitant]
     Active Substance: CLONAZEPAM
     Dosage: 0.5 MG, TID
     Dates: start: 20210716
  6. FUROSEMIDE [Concomitant]
     Active Substance: FUROSEMIDE
     Dosage: 20 MG
     Dates: start: 20210901
  7. GABAPENTIN [Concomitant]
     Active Substance: GABAPENTIN
     Dosage: 300 MG, QD
     Route: 048
     Dates: start: 20210716
  8. LATUDA [Concomitant]
     Active Substance: LURASIDONE HYDROCHLORIDE
     Dosage: 80 MG, QD
     Route: 048
     Dates: start: 20210716
  9. LUNESTA [Concomitant]
     Active Substance: ESZOPICLONE
     Dosage: 3 MG, QD
     Route: 048
     Dates: start: 20220208
  10. LIPITOR [Concomitant]
     Active Substance: ATORVASTATIN CALCIUM
     Dosage: 20 MG
     Dates: start: 20220208
  11. MONTELUKAST [Concomitant]
     Active Substance: MONTELUKAST SODIUM
     Dosage: 10 MG, QD
     Route: 048
     Dates: start: 20210716
  12. PROPRANOLOL [Concomitant]
     Active Substance: PROPRANOLOL HYDROCHLORIDE
     Dosage: 20 MG
     Route: 048
     Dates: start: 20220301
  13. RANOLAZINE [Concomitant]
     Active Substance: RANOLAZINE
     Dosage: UNK UNK, BID
     Route: 048
     Dates: start: 20211111
  14. TIZANIDINE [Concomitant]
     Active Substance: TIZANIDINE
     Dosage: 4 MG, QD
     Route: 048
     Dates: start: 20210716
  15. TOPIRAMATE [Concomitant]
     Active Substance: TOPIRAMATE
     Dosage: 100 MG, QD
     Dates: start: 20210716
  16. TRAMADOL [Concomitant]
     Active Substance: TRAMADOL
     Dosage: 50 MG, BID
     Dates: start: 20220324
  17. TRAZODONE [Concomitant]
     Active Substance: TRAZODONE HYDROCHLORIDE
     Dosage: 150 MG, BID
     Route: 048
     Dates: start: 20210716
  18. VENLAFAXINE [Concomitant]
     Active Substance: VENLAFAXINE HYDROCHLORIDE
     Dosage: 150 MG, BID
     Route: 048
     Dates: start: 20210726
  19. ZYRTEC [Concomitant]
     Active Substance: CETIRIZINE HYDROCHLORIDE
     Dosage: 10 MG, QD
     Route: 048
     Dates: start: 20220208

REACTIONS (7)
  - Pulmonary thrombosis [None]
  - Seasonal allergy [Recovering/Resolving]
  - Multiple allergies [Not Recovered/Not Resolved]
  - Nasal pruritus [Recovering/Resolving]
  - Throat irritation [Recovering/Resolving]
  - Sneezing [Recovering/Resolving]
  - Nasal congestion [Recovering/Resolving]
